FAERS Safety Report 5775046-1 (Version None)
Quarter: 2008Q2

REPORT INFORMATION
  Report Type: 
  Country: None (occurrence: None)
  Receive Date: 20080612
  Receipt Date: 20080530
  Transmission Date: 20081010
  Serious: Yes (Hospitalization)
  Sender: FDA-Public Use
  Company Number: 2008AL006197

PATIENT
  Age: 67 Year
  Sex: Female

DRUGS (2)
  1. DIGOXIN [Suspect]
     Indication: WOLFF-PARKINSON-WHITE SYNDROME
     Dosage: 1 TABLET DAILY PO
     Route: 048
     Dates: start: 19970101, end: 20080509
  2. MULT-VITAMIN [Concomitant]

REACTIONS (6)
  - ASTHENIA [None]
  - CARDIOACTIVE DRUG LEVEL INCREASED [None]
  - FATIGUE [None]
  - HEADACHE [None]
  - HEART RATE DECREASED [None]
  - VISION BLURRED [None]
